FAERS Safety Report 9537396 (Version 1)
Quarter: 2013Q3

REPORT INFORMATION
  Report Type: Report from Study
  Country: US (occurrence: US)
  Receive Date: 20130919
  Receipt Date: 20130919
  Transmission Date: 20140515
  Serious: Yes (Hospitalization, Other)
  Sender: FDA-Public Use
  Company Number: PHEH2013US019075

PATIENT
  Age: 84 Year
  Sex: Female
  Weight: 54.88 kg

DRUGS (17)
  1. GLEEVEC [Suspect]
     Indication: CHRONIC MYELOID LEUKAEMIA
     Dosage: 400 MG, QD
     Route: 048
     Dates: start: 20130821, end: 20130905
  2. CARVEDILOL [Concomitant]
     Dosage: 6.25 MG, BID
  3. ATORVASTATIN [Concomitant]
     Dosage: 10 MG, QOD
  4. CLOPIDOGREL [Concomitant]
     Dosage: 75 MG, QD
  5. DIGOXIN [Concomitant]
     Dosage: 0.125 UKN,DAILY EXCEPT ON WEDNESDAY AND SATURDAY
  6. L THYROXINE [Concomitant]
     Dosage: 50 UG, QOD
  7. DETROL LA [Concomitant]
     Dosage: 4 MG, QD
  8. CHLOORTALIDON [Concomitant]
     Indication: JOINT SWELLING
     Dosage: UNK UKN, QOD
     Dates: start: 1998
  9. CHLOORTALIDON [Concomitant]
     Dosage: UNK UKN, QD
  10. LANSOPRAZOL [Concomitant]
     Dosage: UNK UKN, QD
  11. VITAMIN D [Concomitant]
     Dosage: UNK UKN, UNK
  12. ASPIRIN [Concomitant]
     Dosage: 81 MG, QD
  13. COQ10 [Concomitant]
     Dosage: UNK UKN, QD
  14. CALCIUM [Concomitant]
     Dosage: 1000 MG, QD
  15. CALCIUM [Concomitant]
     Dosage: 1200 MG, QD
  16. MULTI-VIT [Concomitant]
     Dosage: UNK UKN, QD
  17. PROBIOTIC [Concomitant]
     Dosage: UNK UKN, QD

REACTIONS (21)
  - Bronchitis [Recovering/Resolving]
  - Pulmonary oedema [Recovering/Resolving]
  - Dyspnoea [Recovering/Resolving]
  - Local swelling [Recovering/Resolving]
  - Chest pain [Recovering/Resolving]
  - Generalised oedema [Recovering/Resolving]
  - Weight increased [Recovering/Resolving]
  - Blood potassium decreased [Recovering/Resolving]
  - Blood sodium decreased [Recovering/Resolving]
  - Bone pain [Recovering/Resolving]
  - Blood pressure decreased [Recovering/Resolving]
  - Nausea [Recovering/Resolving]
  - Rash [Recovering/Resolving]
  - Rash maculo-papular [Recovering/Resolving]
  - Weight decreased [Recovering/Resolving]
  - Aphagia [Recovering/Resolving]
  - Malaise [Recovering/Resolving]
  - Fatigue [Recovering/Resolving]
  - White blood cell count decreased [Recovering/Resolving]
  - Constipation [Recovering/Resolving]
  - Joint swelling [Recovering/Resolving]
